FAERS Safety Report 9469105 (Version 2)
Quarter: 2014Q1

REPORT INFORMATION
  Report Type: Spontaneous
  Country: CO (occurrence: CO)
  Receive Date: 20130821
  Receipt Date: 20140130
  Transmission Date: 20141002
  Serious: Yes (Other)
  Sender: FDA-Public Use
  Company Number: CO-PFIZER INC-2013241463

PATIENT
  Age: 60 Year
  Sex: Female

DRUGS (3)
  1. ENBREL MYCLIC [Suspect]
     Indication: RHEUMATOID ARTHRITIS
     Dosage: 50 MG, WEEKLY
     Route: 058
     Dates: start: 2009
  2. ADVIL [Suspect]
     Indication: PAIN
     Dosage: UNK
     Route: 048
  3. ENALAPRIL [Concomitant]
     Indication: HYPERTENSION
     Dosage: 20 MG, 1X/DAY
     Route: 048
     Dates: start: 2003

REACTIONS (8)
  - Diabetes mellitus [Recovered/Resolved]
  - Arthropathy [Unknown]
  - Headache [Recovered/Resolved]
  - Feeling hot [Recovered/Resolved]
  - Arthralgia [Recovered/Resolved]
  - Bone pain [Unknown]
  - Flushing [Recovered/Resolved]
  - Injection site mass [Recovering/Resolving]
